FAERS Safety Report 6678676-8 (Version None)
Quarter: 2010Q2

REPORT INFORMATION
  Report Type: 
  Country: None (occurrence: None)
  Receive Date: 20100412
  Receipt Date: 20100412
  Transmission Date: 20101027
  Serious: No
  Sender: FDA-Public Use
  Company Number: None

PATIENT
  Age: 67 Year
  Sex: Male
  Weight: 102 kg

DRUGS (12)
  1. REGULAR INSULIN [Suspect]
     Indication: TYPE 1 DIABETES MELLITUS
     Dosage: 2 UNITS/HOUR CONTINUOUS INFUSION
     Dates: start: 20091221, end: 20091224
  2. HEPARIN [Concomitant]
  3. ASPIRIN [Concomitant]
  4. CEFEPIME [Concomitant]
  5. CLOPIDOGREL [Concomitant]
  6. FENTANYL [Concomitant]
  7. FUROSEMIDE [Concomitant]
  8. LANSOPRAZOLE [Concomitant]
  9. LORAZEPAM [Concomitant]
  10. METOPROLOL TARTRATE [Concomitant]
  11. METRONIDAZOLE [Concomitant]
  12. VANCOMYCIN [Concomitant]

REACTIONS (1)
  - BLOOD GLUCOSE DECREASED [None]
